FAERS Safety Report 23135546 (Version 1)
Quarter: 2023Q4

REPORT INFORMATION
  Report Type: Spontaneous
  Country: US (occurrence: US)
  Receive Date: 20231101
  Receipt Date: 20231101
  Transmission Date: 20240109
  Serious: Yes (Disabling)
  Sender: FDA-Public Use
  Company Number: US-BIOMARINAP-US-2023-153593

PATIENT

DRUGS (1)
  1. SAPROPTERIN DIHYDROCHLORIDE [Suspect]
     Active Substance: SAPROPTERIN DIHYDROCHLORIDE
     Indication: Phenylketonuria
     Dosage: 1000 MILLIGRAM, QD
     Route: 048
     Dates: start: 202107

REACTIONS (1)
  - Dystonia [Recovered/Resolved with Sequelae]

NARRATIVE: CASE EVENT DATE: 20210701
